FAERS Safety Report 5721356-3 (Version None)
Quarter: 2008Q2

REPORT INFORMATION
  Report Type: 
  Country: None (occurrence: None)
  Receive Date: 20080428
  Receipt Date: 20080428
  Transmission Date: 20081010
  Serious: No
  Sender: FDA-Public Use
  Company Number: None

PATIENT
  Age: 59 Year
  Sex: Female
  Weight: 68.0396 kg

DRUGS (1)
  1. ZETIA [Suspect]
     Indication: BLOOD CHOLESTEROL INCREASED
     Dosage: ONE TAB DAILY PO
     Route: 048
     Dates: start: 20060410, end: 20080115

REACTIONS (8)
  - CHEST PAIN [None]
  - CONCUSSION [None]
  - FATIGUE [None]
  - MALAISE [None]
  - MUSCULOSKELETAL PAIN [None]
  - OESOPHAGEAL SPASM [None]
  - SYNCOPE [None]
  - VASOSPASM [None]
